FAERS Safety Report 5060252-4 (Version None)
Quarter: 2006Q3

REPORT INFORMATION
  Report Type: 
  Country: None (occurrence: None)
  Receive Date: 20060720
  Receipt Date: 20060710
  Transmission Date: 20061208
  Serious: Yes (Other)
  Sender: FDA-Public Use
  Company Number: BR-2006-019002

PATIENT
  Sex: Female

DRUGS (1)
  1. YASMIN [Suspect]
     Dosage: 1 TAB(S), ORAL
     Route: 048
     Dates: start: 20050601, end: 20060201

REACTIONS (3)
  - BENIGN BREAST NEOPLASM [None]
  - NEOPLASM PROGRESSION [None]
  - WEIGHT DECREASED [None]
